FAERS Safety Report 5709159-7 (Version None)
Quarter: 2008Q2

REPORT INFORMATION
  Report Type: 
  Country: None (occurrence: None)
  Receive Date: 20080418
  Receipt Date: 20080411
  Transmission Date: 20081010
  Serious: Yes (Other)
  Sender: FDA-Public Use
  Company Number: US-ROCHE-558504

PATIENT
  Age: 12 Year
  Sex: Male

DRUGS (1)
  1. ROCEPHIN [Suspect]
     Route: 042
     Dates: start: 20080409

REACTIONS (8)
  - CHILLS [None]
  - DIPLOPIA [None]
  - DISORIENTATION [None]
  - HALLUCINATION, AUDITORY [None]
  - INCORRECT DRUG ADMINISTRATION RATE [None]
  - MUSCLE SPASTICITY [None]
  - STRABISMUS [None]
  - VISION BLURRED [None]
